FAERS Safety Report 6665385-4 (Version None)
Quarter: 2010Q1

REPORT INFORMATION
  Report Type: 
  Country: None (occurrence: None)
  Receive Date: 20100330
  Receipt Date: 20100322
  Transmission Date: 20100710
  Serious: Yes (Hospitalization)
  Sender: FDA-Public Use
  Company Number: 8043061

PATIENT
  Age: 28 Year
  Sex: Female

DRUGS (8)
  1. KEPPRA [Suspect]
     Indication: EPILEPSY
     Dosage: 1250 MG, DOSE FREQ.: DAILY ORAL, 2500 MG, DOSE FREQ.:  DAILY ORAL
     Route: 048
     Dates: start: 20070901, end: 20090101
  2. KEPPRA [Suspect]
     Indication: EPILEPSY
     Dosage: 1250 MG, DOSE FREQ.: DAILY ORAL, 2500 MG, DOSE FREQ.:  DAILY ORAL
     Route: 048
     Dates: start: 20090211
  3. KEPPRA [Suspect]
     Indication: EPILEPSY
     Dosage: 2000 MG, DOSE FREQ.L: DAILY ORAL
     Route: 048
     Dates: start: 20090101, end: 20090211
  4. FOLIC ACID [Concomitant]
  5. PRENATAL VITAMINS /01549301/ [Concomitant]
  6. FOLIC ACID W/IRON/VITAMIN B12 [Concomitant]
  7. CALCIUM [Concomitant]
  8. SYNTHROID [Concomitant]

REACTIONS (6)
  - DRUG EXPOSURE DURING PREGNANCY [None]
  - FATIGUE [None]
  - HAEMOGLOBIN DECREASED [None]
  - PREGNANCY [None]
  - SYNCOPE [None]
  - VITAMIN B12 DECREASED [None]
